FAERS Safety Report 7911940-0 (Version None)
Quarter: 2011Q4

REPORT INFORMATION
  Report Type: 
  Country: None (occurrence: None)
  Receive Date: 20111102
  Receipt Date: 20110603
  Transmission Date: 20120403
  Serious: Yes (Hospitalization)
  Sender: FDA-Public Use
  Company Number: AUR-APL-2010-02957

PATIENT
  Age: 77 Year
  Sex: Female
  Weight: 57.7 kg

DRUGS (9)
  1. METOPROLOL TARTRATE [Suspect]
     Indication: HYPERTENSION
     Dosage: 100 MG (100 MG, 1 IN 1 D), ORAL
     Route: 048
     Dates: start: 20080101, end: 20101116
  2. NAMENDA [Concomitant]
  3. FOSAMAX [Concomitant]
  4. LISINOPRIL [Concomitant]
  5. PLACEBO [Suspect]
     Indication: DEMENTIA ALZHEIMER'S TYPE
     Dosage: (60 D)
     Dates: start: 20090209, end: 20100812
  6. LIPITOR [Concomitant]
  7. ARICEPT [Suspect]
     Indication: DEMENTIA ALZHEIMER'S TYPE
     Dosage: 10 MG (10 MG, 1 IN 1 D), ORAL 23 MG (23 MG, 1 IN 1 D), ORAL
     Route: 048
     Dates: start: 20101104, end: 20101116
  8. ARICEPT [Suspect]
     Indication: DEMENTIA ALZHEIMER'S TYPE
     Dosage: 10 MG (10 MG, 1 IN 1 D), ORAL 23 MG (23 MG, 1 IN 1 D), ORAL
     Route: 048
     Dates: start: 20080101, end: 20090619
  9. ARICEPT [Suspect]
     Indication: DEMENTIA ALZHEIMER'S TYPE
     Dosage: 10 MG (10 MG, 1 IN 1 D), ORAL 23 MG (23 MG, 1 IN 1 D), ORAL
     Route: 048
     Dates: start: 20090718, end: 20101103

REACTIONS (2)
  - CONDITION AGGRAVATED [None]
  - BRADYCARDIA [None]
